FAERS Safety Report 9848689 (Version 1)
Quarter: 2014Q1

REPORT INFORMATION
  Report Type: Spontaneous
  Country: US (occurrence: None)
  Receive Date: 20140127
  Receipt Date: 20140127
  Transmission Date: 20141002
  Serious: No
  Sender: FDA-Public Use
  Company Number: None

PATIENT
  Age: 60 Year
  Sex: Female
  Weight: 81.65 kg

DRUGS (2)
  1. CYMBALTA [Suspect]
     Indication: PAIN
     Dosage: CYMBALTA ONCE DAILY TAKEN BY MOUTH
     Route: 048
  2. CYMBALTA [Suspect]
     Indication: DEPRESSION
     Dosage: CYMBALTA ONCE DAILY TAKEN BY MOUTH
     Route: 048

REACTIONS (2)
  - Retinal tear [None]
  - Vitreous floaters [None]
